FAERS Safety Report 7523368-6 (Version None)
Quarter: 2011Q2

REPORT INFORMATION
  Report Type: 
  Country: None (occurrence: None)
  Receive Date: 20110603
  Receipt Date: 20110525
  Transmission Date: 20111010
  Serious: Yes (Hospitalization)
  Sender: FDA-Public Use
  Company Number: B0696906A

PATIENT
  Sex: Female

DRUGS (3)
  1. PREDNISOLONE [Concomitant]
     Dosage: 20MG PER DAY
     Route: 065
  2. AUGMENTIN '125' [Suspect]
     Indication: TONSILLITIS
     Dosage: 1TAB TWICE PER DAY
     Route: 048
  3. HYDROCORTISONE [Concomitant]
     Route: 061

REACTIONS (12)
  - PYREXIA [None]
  - VOMITING [None]
  - PETECHIAE [None]
  - MENINGITIS [None]
  - ACUTE HEPATIC FAILURE [None]
  - HYPOTENSION [None]
  - NAUSEA [None]
  - DIARRHOEA [None]
  - MUSCULOSKELETAL STIFFNESS [None]
  - RENAL FAILURE ACUTE [None]
  - INFECTIOUS MONONUCLEOSIS [None]
  - DRUG HYPERSENSITIVITY [None]
